FAERS Safety Report 9738730 (Version 1)
Quarter: 2013Q4

REPORT INFORMATION
  Report Type: Spontaneous
  Country: AR (occurrence: AR)
  Receive Date: 20131209
  Receipt Date: 20131209
  Transmission Date: 20140711
  Serious: Yes (Hospitalization, Other)
  Sender: FDA-Public Use
  Company Number: AR-AMGEN-ARGSP2013086304

PATIENT
  Age: 69 Year
  Sex: Female

DRUGS (1)
  1. ENBREL [Suspect]
     Indication: RHEUMATOID ARTHRITIS
     Dosage: 50 MG, WEEKLY
     Route: 065
     Dates: start: 20060504, end: 201310

REACTIONS (10)
  - Respiratory disorder [Recovering/Resolving]
  - Rheumatoid arthritis [Not Recovered/Not Resolved]
  - Bronchospasm [Recovered/Resolved]
  - Dyspnoea [Recovering/Resolving]
  - Cough [Recovering/Resolving]
  - Increased upper airway secretion [Recovering/Resolving]
  - Arthritis [Not Recovered/Not Resolved]
  - Drug ineffective [Not Recovered/Not Resolved]
  - Cardiac failure [Recovered/Resolved]
  - Nasopharyngitis [Recovering/Resolving]
